FAERS Safety Report 6088137-5 (Version None)
Quarter: 2009Q1

REPORT INFORMATION
  Report Type: 
  Country: None (occurrence: None)
  Receive Date: 20090224
  Receipt Date: 20090213
  Transmission Date: 20090719
  Serious: Yes (Other)
  Sender: FDA-Public Use
  Company Number: GB-RANBAXY-2009RR-21897

PATIENT
  Age: 67 Year
  Sex: Male
  Weight: 87.4 kg

DRUGS (5)
  1. FENOFIBRATE [Suspect]
     Indication: CARDIOVASCULAR EVENT PROPHYLAXIS
     Dosage: 267 MG, UNK
     Route: 048
     Dates: start: 20071029, end: 20080623
  2. NITROGLYCERIN [Concomitant]
     Indication: ANGINA PECTORIS
     Dosage: 2 DF, PRN
     Route: 055
  3. METFORMIN [Concomitant]
     Indication: TYPE 2 DIABETES MELLITUS
     Dosage: 500 MG, TID
     Route: 048
  4. NIFEDIPINE [Concomitant]
     Dosage: 10 MG, QD
     Route: 048
  5. RAMIPRIL [Concomitant]
     Indication: HYPERTENSION
     Dosage: 5 MG, QD
     Route: 048

REACTIONS (1)
  - HIGH DENSITY LIPOPROTEIN DECREASED [None]
